FAERS Safety Report 4534884-3 (Version None)
Quarter: 2004Q4

REPORT INFORMATION
  Report Type: 
  Country: None (occurrence: None)
  Receive Date: 20041222
  Receipt Date: 20040615
  Transmission Date: 20050328
  Serious: No
  Sender: FDA-Public Use
  Company Number: US-BRISTOL-MYERS SQUIBB COMPANY-12616140

PATIENT
  Age: 71 Year
  Sex: Female
  Weight: 82 kg

DRUGS (11)
  1. PRAVACHOL [Suspect]
     Indication: BLOOD CHOLESTEROL INCREASED
     Route: 048
     Dates: start: 20040601, end: 20040609
  2. PRAVACHOL [Suspect]
     Indication: CEREBROVASCULAR ACCIDENT
     Route: 048
     Dates: start: 20040601, end: 20040609
  3. INSULIN [Concomitant]
  4. VIVACTIL [Concomitant]
  5. ISOSORBIDE [Concomitant]
  6. PLENDIL [Concomitant]
  7. PLAVIX [Concomitant]
  8. PROTONIX [Concomitant]
  9. ARIMIDEX [Concomitant]
  10. QUININE [Concomitant]
  11. ASPIRIN [Concomitant]

REACTIONS (1)
  - NEUROPATHY PERIPHERAL [None]
